FAERS Safety Report 9556245 (Version 1)
Quarter: 2013Q3

REPORT INFORMATION
  Report Type: Spontaneous
  Country: JP (occurrence: None)
  Receive Date: 20130924
  Receipt Date: 20130924
  Transmission Date: 20140515
  Serious: Yes (Life-Threatening, Other)
  Sender: FDA-Public Use
  Company Number: CO-OR-JP-2013-091

PATIENT
  Sex: 0

DRUGS (5)
  1. PREDNISOLONE [Suspect]
     Indication: MYASTHENIA GRAVIS
     Dosage: ALTERNATE-DAY ADMINISTRATION 5-10 MG/DAY
     Route: 048
  2. HISTAMIN H2 BLOCKER [Concomitant]
  3. VITAMIN D [Concomitant]
  4. BISPHOSPHONATE [Concomitant]
  5. POTASSIUM [Concomitant]

REACTIONS (2)
  - Postoperative respiratory failure [None]
  - Myasthenia gravis crisis [None]
